FAERS Safety Report 7991667-X (Version None)
Quarter: 2011Q4

REPORT INFORMATION
  Report Type: 
  Country: None (occurrence: None)
  Receive Date: 20111219
  Receipt Date: 20111205
  Transmission Date: 20120403
  Serious: Yes (Other)
  Sender: FDA-Public Use
  Company Number: PHEH2011US010878

PATIENT
  Sex: Female

DRUGS (11)
  1. DIOVAN [Suspect]
     Dosage: 80 MG, QD
  2. DIOVAN [Suspect]
     Dosage: 160 MG, QD
  3. VITAMIN D [Suspect]
     Dosage: 1 DF, QD
  4. IRON [Suspect]
     Dosage: 1 DF, DAILY
  5. ONE A DAY [Concomitant]
  6. HYDROCHLOROTHIAZIDE [Suspect]
     Dosage: 1 DF, (12.5MG) ONCE DAILY
  7. LIPITOR [Suspect]
     Dosage: 0.5 DF, DAILY
  8. VITAMIN B-12 [Suspect]
     Dosage: 1 DF, (1000MCG) DAILY
  9. LITHIUM CARBONATE [Suspect]
     Indication: DEPRESSION
  10. ASPIRIN [Concomitant]
     Dosage: UNK UKN, UNK
  11. CALCIUM WITH VITAMIN D [Suspect]
     Dosage: 2 DF, (1200MG) ONCE DAILY

REACTIONS (4)
  - THYROID NEOPLASM [None]
  - FATIGUE [None]
  - BLOOD PRESSURE INCREASED [None]
  - NERVOUSNESS [None]
